FAERS Safety Report 5077665-7 (Version None)
Quarter: 2006Q3

REPORT INFORMATION
  Report Type: 
  Country: None (occurrence: None)
  Receive Date: 20060810
  Receipt Date: 20060807
  Transmission Date: 20061208
  Serious: Yes (Death, Hospitalization, Other)
  Sender: FDA-Public Use
  Company Number: US-BRISTOL-MYERS SQUIBB COMPANY-13467469

PATIENT
  Age: 72 Year
  Sex: Female
  Weight: 53 kg

DRUGS (7)
  1. PACLITAXEL [Suspect]
     Indication: NON-SMALL CELL LUNG CANCER
     Route: 042
     Dates: start: 20050425
  2. CARBOPLATIN [Suspect]
     Indication: NON-SMALL CELL LUNG CANCER
     Route: 042
     Dates: start: 20050425, end: 20050425
  3. WARFARIN SODIUM [Concomitant]
     Dates: start: 20050419
  4. NORCO [Concomitant]
  5. ALBUTEROL (ARM) [Concomitant]
  6. ATIVAN [Concomitant]
     Dates: start: 20050419
  7. ARANESP [Concomitant]
     Dates: start: 20050425, end: 20050425

REACTIONS (9)
  - ATRIAL FIBRILLATION [None]
  - DEHYDRATION [None]
  - MALIGNANT NEOPLASM PROGRESSION [None]
  - NEUTROPENIA [None]
  - NEUTROPENIC SEPSIS [None]
  - OCCULT BLOOD POSITIVE [None]
  - PANCYTOPENIA [None]
  - RENAL FAILURE [None]
  - SUPRAVENTRICULAR TACHYCARDIA [None]
